FAERS Safety Report 5989283-4 (Version None)
Quarter: 2008Q4

REPORT INFORMATION
  Report Type: 
  Country: None (occurrence: None)
  Receive Date: 20081205
  Receipt Date: 20081126
  Transmission Date: 20090506
  Serious: Yes (Death)
  Sender: FDA-Public Use
  Company Number: GXKR2008GB11303

PATIENT
  Age: 77 Year
  Sex: Female

DRUGS (16)
  1. GABAPENTIN [Suspect]
     Dosage: 600 MG, TID, ORAL
     Route: 048
     Dates: start: 20080811
  2. SIMVASTATIN [Suspect]
     Dosage: 40 MG, QD, ORAL
     Route: 048
     Dates: start: 20060101
  3. AMINOPHYLLINE (AMINOPHYLLINE) UNKNOWN [Suspect]
     Dosage: 225 MG, BID, ORAL
     Route: 048
     Dates: start: 20080810
  4. CARBOCISTEINE (CARBOCISTEINE) [Suspect]
     Dosage: 375 MG, TID, ORAL
     Route: 048
     Dates: start: 20080810
  5. AMITRIPTYLINE HYDROCHLORIDE [Concomitant]
  6. AVETYLSALICYLIC ACID (ACETYLSALICYLIC ACID) [Concomitant]
  7. DILTIAZEM [Concomitant]
  8. DIPYRIDAMOLE [Concomitant]
  9. ENALAPRIL MALEATE [Concomitant]
  10. OMEPRAZOLE [Concomitant]
  11. ACETAMINOPHEN [Concomitant]
  12. PHYLLOCONTIN [Concomitant]
  13. QVAR (BECLOMETASONE DIPROPIONATE), 100 UG [Concomitant]
  14. SALBUTAMOL (SALBUTAMOL) [Concomitant]
  15. TIOTROPIUM BROMIDE (TIOTROPIUM BROMIDE) [Concomitant]
  16. TRAMADOL (TRAMADOL), 50 MG [Concomitant]

REACTIONS (3)
  - PANCREATITIS [None]
  - RENAL FAILURE [None]
  - RHABDOMYOLYSIS [None]
